FAERS Safety Report 23226896 (Version 3)
Quarter: 2024Q4

REPORT INFORMATION
  Report Type: Spontaneous
  Country: JP (occurrence: JP)
  Receive Date: 20231124
  Receipt Date: 20241218
  Transmission Date: 20250115
  Serious: Yes (Hospitalization, Other)
  Sender: ALEXION PHARMACEUTICALS
  Company Number: 2023A264556

PATIENT
  Age: 64 Year

DRUGS (16)
  1. IMFINZI [Suspect]
     Active Substance: DURVALUMAB
     Indication: Hepatocellular carcinoma
     Dosage: 1500 MILLIGRAM, UNK, FREQUENCY: Q4WK
  2. IMFINZI [Suspect]
     Active Substance: DURVALUMAB
     Dosage: 1500 MILLIGRAM, UNK, FREQUENCY: Q4WK
     Route: 042
  3. IMFINZI [Suspect]
     Active Substance: DURVALUMAB
     Dosage: 1500 MILLIGRAM, UNK, FREQUENCY: Q4WK
  4. IMFINZI [Suspect]
     Active Substance: DURVALUMAB
     Dosage: 1500 MILLIGRAM, UNK, FREQUENCY: Q4WK
     Route: 042
  5. IMJUDO [Suspect]
     Active Substance: TREMELIMUMAB\TREMELIMUMAB-ACTL
     Indication: Hepatocellular carcinoma
     Dosage: 300 MILLIGRAM
  6. IMJUDO [Suspect]
     Active Substance: TREMELIMUMAB\TREMELIMUMAB-ACTL
     Dosage: 300 MILLIGRAM
     Route: 042
  7. IMJUDO [Suspect]
     Active Substance: TREMELIMUMAB\TREMELIMUMAB-ACTL
     Dosage: 300 MILLIGRAM
  8. IMJUDO [Suspect]
     Active Substance: TREMELIMUMAB\TREMELIMUMAB-ACTL
     Dosage: 300 MILLIGRAM
     Route: 042
  9. IMFINZI [Suspect]
     Active Substance: DURVALUMAB
     Indication: Hepatocellular carcinoma
     Dosage: 1500 MILLIGRAM
  10. IMFINZI [Suspect]
     Active Substance: DURVALUMAB
     Dosage: 1500 MILLIGRAM
     Route: 041
  11. IMFINZI [Suspect]
     Active Substance: DURVALUMAB
     Dosage: 1500 MILLIGRAM
  12. IMFINZI [Suspect]
     Active Substance: DURVALUMAB
     Dosage: 1500 MILLIGRAM
     Route: 041
  13. IMJUDO [Suspect]
     Active Substance: TREMELIMUMAB\TREMELIMUMAB-ACTL
     Indication: Hepatocellular carcinoma
     Dosage: 300 MILLIGRAM
  14. IMJUDO [Suspect]
     Active Substance: TREMELIMUMAB\TREMELIMUMAB-ACTL
     Dosage: 300 MILLIGRAM
     Route: 041
  15. IMJUDO [Suspect]
     Active Substance: TREMELIMUMAB\TREMELIMUMAB-ACTL
     Dosage: 300 MILLIGRAM
  16. IMJUDO [Suspect]
     Active Substance: TREMELIMUMAB\TREMELIMUMAB-ACTL
     Dosage: 300 MILLIGRAM
     Route: 041

REACTIONS (4)
  - Myocarditis [Unknown]
  - Diarrhoea [Unknown]
  - Tachycardia [Unknown]
  - Rash [Unknown]
